FAERS Safety Report 18386632 (Version 2)
Quarter: 2020Q4

REPORT INFORMATION
  Report Type: Spontaneous
  Country: CA (occurrence: CA)
  Receive Date: 20201015
  Receipt Date: 20201223
  Transmission Date: 20210114
  Serious: Yes (Other)
  Sender: FDA-Public Use
  Company Number: CA-JNJFOC-20201016092

PATIENT
  Age: 53 Year
  Sex: Female
  Weight: 103.8 kg

DRUGS (1)
  1. REMICADE [Suspect]
     Active Substance: INFLIXIMAB
     Indication: UVEITIS
     Route: 042
     Dates: end: 20191001

REACTIONS (5)
  - Off label use [Unknown]
  - Product use in unapproved indication [Unknown]
  - Uveitis [Unknown]
  - Keratitis [Unknown]
  - Arthritis [Unknown]

NARRATIVE: CASE EVENT DATE: 201908
